FAERS Safety Report 17377503 (Version 1)
Quarter: 2020Q1

REPORT INFORMATION
  Report Type: Spontaneous
  Country: US (occurrence: US)
  Receive Date: 20200206
  Receipt Date: 20200206
  Transmission Date: 20200409
  Serious: No
  Sender: FDA-Public Use
  Company Number: US-PFIZER INC-2020049237

PATIENT
  Sex: Female

DRUGS (1)
  1. XELJANZ [Suspect]
     Active Substance: TOFACITINIB CITRATE
     Indication: UVEITIS
     Dosage: UNK

REACTIONS (4)
  - Product use in unapproved indication [Unknown]
  - Skin disorder [Unknown]
  - Off label use [Unknown]
  - Drug effective for unapproved indication [Unknown]
